FAERS Safety Report 11604787 (Version 1)
Quarter: 2015Q4

REPORT INFORMATION
  Report Type: Spontaneous
  Country: BR (occurrence: BR)
  Receive Date: 20151007
  Receipt Date: 20151007
  Transmission Date: 20160304
  Serious: Yes (Other)
  Sender: FDA-Public Use
  Company Number: BR-TORRENT-00003135

PATIENT
  Sex: Female

DRUGS (2)
  1. NIMESULIDE [Concomitant]
     Active Substance: NIMESULIDE
     Indication: PRODUCT USED FOR UNKNOWN INDICATION
     Dosage: DOSE NUMBER IS UNKNOWN/ NUMBER OF UNITS IN INTERVAL IS UNKNOWN/ ORAL
     Route: 048
  2. ALCYTAM [Suspect]
     Active Substance: CITALOPRAM HYDROBROMIDE
     Indication: PRODUCT USED FOR UNKNOWN INDICATION
     Dosage: PATIENT TAKES 10 MG DAILY OF ALCYTAM/ ORAL
     Route: 048

REACTIONS (1)
  - Vitreous haemorrhage [Unknown]
